FAERS Safety Report 23129782 (Version 2)
Quarter: 2023Q4

REPORT INFORMATION
  Report Type: Report from Study
  Country: US (occurrence: US)
  Receive Date: 20231031
  Receipt Date: 20231120
  Transmission Date: 20240110
  Serious: Yes (Hospitalization, Other)
  Sender: FDA-Public Use
  Company Number: US-GILEAD-2023-0648712

PATIENT
  Sex: Female

DRUGS (1)
  1. AZTREONAM LYSINE [Suspect]
     Active Substance: AZTREONAM LYSINE
     Indication: Bacterial infection
     Dosage: 1 DOSAGE FORM, TID [INHALE 1 VIAL 3 TIMES DAY FOR 28 DAYS ON AND 28 DAYS OFF]
     Route: 055

REACTIONS (4)
  - Cystic fibrosis [Unknown]
  - Infection [Unknown]
  - Maternal exposure during pregnancy [Unknown]
  - Off label use [Unknown]
